FAERS Safety Report 5103768-4 (Version None)
Quarter: 2006Q3

REPORT INFORMATION
  Report Type: 
  Country: None (occurrence: None)
  Receive Date: 20060913
  Receipt Date: 20060904
  Transmission Date: 20061208
  Serious: Yes (Hospitalization)
  Sender: FDA-Public Use
  Company Number: JP-MERCK-0609USA01251

PATIENT
  Age: 84 Year
  Sex: Female

DRUGS (7)
  1. PEPCID [Suspect]
     Route: 048
     Dates: start: 20040615, end: 20060823
  2. HERBESSER R [Suspect]
     Route: 048
     Dates: start: 20040615, end: 20060823
  3. TRANDOLAPRIL [Suspect]
     Route: 048
     Dates: start: 20040615, end: 20060823
  4. 8-HOUR BAYER [Concomitant]
     Route: 048
     Dates: start: 20040615
  5. MAINTATE [Concomitant]
     Route: 048
     Dates: start: 20040615
  6. SELBEX [Concomitant]
     Route: 048
     Dates: start: 20040615, end: 20060823
  7. FLUITRAN [Concomitant]
     Route: 048
     Dates: start: 20050208, end: 20060823

REACTIONS (1)
  - LIVER DISORDER [None]
